FAERS Safety Report 9526338 (Version 1)
Quarter: 2013Q1

REPORT INFORMATION
  Report Type: Spontaneous
  Country: US (occurrence: None)
  Receive Date: 20130305
  Receipt Date: 20130305
  Transmission Date: 20140127
  Serious: Yes (Hospitalization)
  Sender: FDA-Public Use
  Company Number: 163-21880-12030853

PATIENT
  Age: 76 Year
  Sex: Male
  Weight: 82 kg

DRUGS (6)
  1. REVLIMID [Suspect]
     Indication: PLASMA CELL MYELOMA
     Dosage: 25 M, DAY1-14 OFF 7 DAYS, PO
     Route: 048
     Dates: start: 20111202, end: 20120227
  2. FLOMAX (TAMSULOSIN HYDROCHLORIDE) (0.4 MILLIGRAM, CAPSULES) [Concomitant]
  3. GEMFIBROZIL (GEMFIBROZIL) [Concomitant]
  4. AMLODIPINE (AMLODIPINE) [Concomitant]
  5. OMEPRAZOLE (OMEPRAZOLE) [Concomitant]
  6. ACYCLOVIR (ACICLOVIR) [Concomitant]

REACTIONS (1)
  - Pneumonia [None]
